FAERS Safety Report 21315119 (Version 1)
Quarter: 2022Q3

REPORT INFORMATION
  Report Type: Spontaneous
  Country: US (occurrence: US)
  Receive Date: 20220909
  Receipt Date: 20220909
  Transmission Date: 20221027
  Serious: Yes (Other)
  Sender: FDA-Public Use
  Company Number: US-PFIZER INC-PV202200059494

PATIENT

DRUGS (2)
  1. LYRICA [Suspect]
     Active Substance: PREGABALIN
     Indication: Analgesic therapy
     Dosage: 200 MG, 1X/DAY
     Dates: start: 2022
  2. LYRICA [Suspect]
     Active Substance: PREGABALIN
     Indication: Fibromyalgia

REACTIONS (2)
  - Glaucoma [Unknown]
  - Eye disorder [Unknown]

NARRATIVE: CASE EVENT DATE: 20220101
